FAERS Safety Report 5664548-4 (Version None)
Quarter: 2008Q1

REPORT INFORMATION
  Report Type: 
  Country: None (occurrence: None)
  Receive Date: 20080314
  Receipt Date: 20080311
  Transmission Date: 20080703
  Serious: Yes (Hospitalization)
  Sender: FDA-Public Use
  Company Number: GB-SANOFI-SYNTHELABO-A01200802542

PATIENT
  Sex: Female

DRUGS (7)
  1. ACETAMINOPHEN [Concomitant]
     Indication: PAIN
     Dosage: UNK
     Route: 065
  2. CONTRACEPTIVES [Concomitant]
     Indication: CONTRACEPTION
     Dosage: UNK
     Route: 048
  3. GABAPENTIN [Concomitant]
     Dosage: UNK
     Route: 065
  4. PETHIDINE [Suspect]
     Indication: PAIN
     Route: 042
  5. TRAMADOL HCL [Interacting]
     Indication: PAIN
     Dosage: UNK
     Route: 065
  6. GABAPENTIN [Interacting]
     Dosage: UNK
     Route: 065
  7. ST JOHN'S WORT [Interacting]
     Indication: DRUG USE FOR UNKNOWN INDICATION
     Dosage: UNK
     Route: 065

REACTIONS (6)
  - CONFUSIONAL STATE [None]
  - DRUG INTERACTION [None]
  - HALLUCINATION, VISUAL [None]
  - PYREXIA [None]
  - SEROTONIN SYNDROME [None]
  - TREMOR [None]
